FAERS Safety Report 7364848-6 (Version None)
Quarter: 2011Q1

REPORT INFORMATION
  Report Type: 
  Country: None (occurrence: None)
  Receive Date: 20110321
  Receipt Date: 20110310
  Transmission Date: 20110831
  Serious: Yes (Hospitalization)
  Sender: FDA-Public Use
  Company Number: PHHO2011US04540

PATIENT
  Sex: Female

DRUGS (11)
  1. KLOR-CON [Concomitant]
  2. ZETIA [Concomitant]
  3. GLYBURIDE [Concomitant]
  4. SIMVASTATIN [Concomitant]
  5. ACTOS [Concomitant]
  6. ALEVE [Concomitant]
  7. LANTUS [Concomitant]
  8. LISINOPRIL [Concomitant]
  9. LEVOTHYROXINE SODIUM [Concomitant]
  10. TASIGNA [Suspect]
     Indication: CHRONIC MYELOID LEUKAEMIA
     Dosage: 200 MG, BID
     Route: 048
     Dates: start: 20090210
  11. FUROSEMIDE [Concomitant]

REACTIONS (3)
  - FALL [None]
  - RIB FRACTURE [None]
  - DIABETIC COMPLICATION [None]
